FAERS Safety Report 6401029-4 (Version None)
Quarter: 2009Q4

REPORT INFORMATION
  Report Type: 
  Country: None (occurrence: None)
  Receive Date: 20091013
  Receipt Date: 20091013
  Transmission Date: 20100525
  Serious: Yes (Other)
  Sender: FDA-Public Use
  Company Number: None

PATIENT
  Sex: Female
  Weight: 72.1219 kg

DRUGS (2)
  1. CYMBALTA [Suspect]
     Indication: DEPRESSION
     Dosage: 20MG 2 TIMES DAILY PO
     Route: 048
     Dates: start: 20060901, end: 20091002
  2. CYMBALTA [Suspect]
     Indication: PAIN
     Dosage: 20MG 2 TIMES DAILY PO
     Route: 048
     Dates: start: 20060901, end: 20091002

REACTIONS (10)
  - ANGER [None]
  - CRYING [None]
  - DEPRESSION [None]
  - DRUG WITHDRAWAL SYNDROME [None]
  - DYSKINESIA [None]
  - HALLUCINATIONS, MIXED [None]
  - HYPERACUSIS [None]
  - MOOD SWINGS [None]
  - PARAESTHESIA [None]
  - SUICIDAL IDEATION [None]
